FAERS Safety Report 9297748 (Version 2)
Quarter: 2013Q2

REPORT INFORMATION
  Report Type: Spontaneous
  Country: US (occurrence: US)
  Receive Date: 20130520
  Receipt Date: 20130606
  Transmission Date: 20140414
  Serious: Yes (Other)
  Sender: FDA-Public Use
  Company Number: US-PFIZER INC-2013149861

PATIENT
  Age: 65 Year
  Sex: Female
  Weight: 108.8 kg

DRUGS (4)
  1. CELEBREX [Suspect]
     Indication: ARTHRITIS
     Dosage: 200 MG, 1X/DAY
     Route: 048
  2. CELEBREX [Suspect]
     Dosage: 200 MG, 2X/DAY
     Route: 048
  3. CELEBREX [Suspect]
     Dosage: 200 MG, 1X/DAY
     Route: 048
  4. CELEBREX [Suspect]
     Dosage: 200 MG, UNK
     Route: 048
     Dates: end: 201301

REACTIONS (5)
  - Arthralgia [Unknown]
  - Hypothyroidism [Unknown]
  - Blood cholesterol increased [Unknown]
  - Decreased appetite [Unknown]
  - Weight decreased [Unknown]
